FAERS Safety Report 9592185 (Version 5)
Quarter: 2013Q4

REPORT INFORMATION
  Report Type: Spontaneous
  Country: US (occurrence: US)
  Receive Date: 20131004
  Receipt Date: 20131220
  Transmission Date: 20140711
  Serious: Yes (Hospitalization)
  Sender: FDA-Public Use
  Company Number: US-BIOGENIDEC-2013BI094291

PATIENT
  Age: 42 Year
  Sex: Female

DRUGS (14)
  1. TECFIDERA [Suspect]
     Indication: MULTIPLE SCLEROSIS
     Route: 048
     Dates: start: 20130615, end: 20130622
  2. TECFIDERA [Suspect]
     Indication: MULTIPLE SCLEROSIS
     Route: 048
     Dates: start: 20130623, end: 20130913
  3. CHOLESTYRAMINE [Concomitant]
     Dates: start: 201303
  4. BENADRYL [Concomitant]
     Dates: start: 20130606
  5. TRICOR [Concomitant]
     Dates: start: 20130724
  6. ZYRTEC [Concomitant]
  7. MELATONIN [Concomitant]
     Dates: start: 20130606
  8. FLUTICASONE NASAL SPRAY [Concomitant]
     Dates: start: 20130606
  9. IBUPROFEN [Concomitant]
     Dates: start: 20130606
  10. OXYBUTYNIN [Concomitant]
     Dates: start: 20130606
  11. PERCOCET [Concomitant]
     Dates: start: 20130724
  12. SALINE NASAL SPRAY [Concomitant]
     Dates: start: 20130606
  13. TOPAMAX [Concomitant]
     Dates: start: 20130724
  14. ZANAFLEX [Concomitant]
     Dates: start: 20130606

REACTIONS (3)
  - Multiple sclerosis relapse [Unknown]
  - Drug ineffective [Unknown]
  - Convulsion [Recovered/Resolved]
